FAERS Safety Report 5129082-9 (Version None)
Quarter: 2006Q4

REPORT INFORMATION
  Report Type: 
  Country: None (occurrence: None)
  Receive Date: 20061016
  Receipt Date: 20061016
  Transmission Date: 20070319
  Serious: Yes (Hospitalization, Other)
  Sender: FDA-Public Use
  Company Number: None

PATIENT
  Age: 68 Year
  Sex: Male

DRUGS (11)
  1. ALLOPURINOL [Suspect]
     Dosage: 300MG  DAILY  PO
     Route: 048
  2. AZATHIAPRINE    50MG     UNKNOWN [Suspect]
     Indication: HEART TRANSPLANT
     Dosage: 75MG    DAILY   PO
     Route: 048
  3. TEMAZEPAM [Concomitant]
  4. GABAPENTIN [Concomitant]
  5. CHOLESTYRAMINE [Concomitant]
  6. ASPIRIN [Concomitant]
  7. LOPERAMIDE [Concomitant]
  8. DIPHENOXALATE/ATROPINE [Concomitant]
  9. TACROLIMUS [Concomitant]
  10. PREDNISONE TAB [Concomitant]
  11. TRIMETHOPRIM + SULFAMETHOXAZOLE [Concomitant]

REACTIONS (3)
  - DRUG INTERACTION [None]
  - DRUG LEVEL INCREASED [None]
  - PANCYTOPENIA [None]
